FAERS Safety Report 11303295 (Version 1)
Quarter: 2015Q3

REPORT INFORMATION
  Report Type: Spontaneous
  Country: US (occurrence: US)
  Receive Date: 20150723
  Receipt Date: 20150723
  Transmission Date: 20151125
  Serious: No
  Sender: FDA-Public Use
  Company Number: US-JNJFOC-20150209436

PATIENT
  Age: 76 Year
  Sex: Female
  Weight: 81.65 kg

DRUGS (4)
  1. ZYRTEC [Suspect]
     Active Substance: CETIRIZINE HYDROCHLORIDE
     Indication: EYE IRRITATION
     Dosage: 2 TABLETS ON 08-FEB-2015 AND 1 TABLET ON 09-FEB-2015
     Route: 048
     Dates: start: 20150208, end: 20150209
  2. ZYRTEC [Suspect]
     Active Substance: CETIRIZINE HYDROCHLORIDE
     Indication: HEADACHE
     Dosage: 2 TABLETS ON 08-FEB-2015 AND 1 TABLET ON 09-FEB-2015
     Route: 048
     Dates: start: 20150208, end: 20150209
  3. AMLODIPINE [Concomitant]
     Active Substance: AMLODIPINE BESYLATE
     Indication: HYPERTENSION
     Route: 065
  4. METOPROLOL [Concomitant]
     Active Substance: METOPROLOL
     Indication: HYPERTENSION
     Route: 065

REACTIONS (3)
  - Extra dose administered [Unknown]
  - Product use issue [Unknown]
  - Drug ineffective for unapproved indication [Unknown]
